FAERS Safety Report 15735153 (Version 1)
Quarter: 2018Q4

REPORT INFORMATION
  Report Type: Spontaneous
  Country: DE (occurrence: DE)
  Receive Date: 20181218
  Receipt Date: 20181218
  Transmission Date: 20190205
  Serious: Yes (Hospitalization, Other)
  Sender: FDA-Public Use
  Company Number: DE-BAYER-2018-229552

PATIENT
  Age: 69 Year
  Sex: Male
  Weight: 102.8 kg

DRUGS (10)
  1. METOPROLOLSUCCINAAT [Concomitant]
     Active Substance: METOPROLOL SUCCINATE
     Dosage: UNK UNK, QD
  2. XIPAMID [Concomitant]
     Active Substance: XIPAMIDE
     Dosage: 10 MG, QD
  3. ADENURIC [Concomitant]
     Active Substance: FEBUXOSTAT
     Dosage: UNK UNK, QD
  4. JANUVIA [Concomitant]
     Active Substance: SITAGLIPTIN PHOSPHATE
     Dosage: UNK UNK, QD
  5. NEXAVAR [Suspect]
     Active Substance: SORAFENIB
     Indication: HEPATOCELLULAR CARCINOMA
     Dosage: UNK
     Dates: start: 20181116
  6. BICANORM [Concomitant]
     Active Substance: SODIUM BICARBONATE
     Dosage: UNK UNK, TID
  7. SEVIKAR [Concomitant]
     Active Substance: AMLODIPINE BESYLATE\OLMESARTAN MEDOXOMIL
     Dosage: UNK UNK, BID
  8. LANTUS [Concomitant]
     Active Substance: INSULIN GLARGINE
  9. CLONIDIN [Concomitant]
     Active Substance: CLONIDINE
  10. NEXAVAR [Suspect]
     Active Substance: SORAFENIB
     Indication: HEPATOCELLULAR CARCINOMA
     Dosage: UNK
     Dates: start: 20181023, end: 20181107

REACTIONS (3)
  - Amyloidosis [None]
  - Proteinuria [None]
  - Paraneoplastic glomerulonephritis [None]

NARRATIVE: CASE EVENT DATE: 20181129
